FAERS Safety Report 25766033 (Version 1)
Quarter: 2025Q3

REPORT INFORMATION
  Report Type: Spontaneous
  Country: US (occurrence: US)
  Receive Date: 20250905
  Receipt Date: 20250905
  Transmission Date: 20251020
  Serious: No
  Sender: DOMPE FARMACEUTICI
  Company Number: US-FARMAPROD-202407-2725

PATIENT
  Age: 71 Year
  Sex: Female

DRUGS (29)
  1. OXERVATE [Suspect]
     Active Substance: CENEGERMIN-BKBJ
     Indication: Neurotrophic keratopathy
     Route: 047
     Dates: start: 20240724
  2. OXERVATE [Suspect]
     Active Substance: CENEGERMIN-BKBJ
  3. DONEPEZIL HYDROCHLORIDE [Concomitant]
     Active Substance: DONEPEZIL HYDROCHLORIDE
  4. NIACIN [Concomitant]
     Active Substance: NIACIN
  5. ZINC [Concomitant]
     Active Substance: ZINC
  6. VITAMIN D-400 [Concomitant]
  7. XYZAL [Concomitant]
     Active Substance: LEVOCETIRIZINE DIHYDROCHLORIDE
  8. ZANAFLEX [Concomitant]
     Active Substance: TIZANIDINE HYDROCHLORIDE
  9. GABAPENTIN [Concomitant]
     Active Substance: GABAPENTIN
  10. PRAVASTATIN SODIUM [Concomitant]
     Active Substance: PRAVASTATIN SODIUM
  11. DOXYCYCLINE HYCLATE [Concomitant]
     Active Substance: DOXYCYCLINE HYCLATE
  12. AMBIEN [Concomitant]
     Active Substance: ZOLPIDEM TARTRATE
  13. CITALOPRAM HYDROBROMIDE [Concomitant]
     Active Substance: CITALOPRAM HYDROBROMIDE
  14. MINERALS\VITAMINS [Concomitant]
     Active Substance: MINERALS\VITAMINS
  15. VITAMIN C [Concomitant]
     Active Substance: ASCORBIC ACID
  16. CALCIUM [Concomitant]
     Active Substance: CALCIUM
  17. ACYCLOVIR [Concomitant]
     Active Substance: ACYCLOVIR
  18. XIIDRA [Concomitant]
     Active Substance: LIFITEGRAST
  19. FIBER THERAPY (CALCIUM POLYCARBOPHIL) [Concomitant]
     Active Substance: CALCIUM POLYCARBOPHIL
  20. ELDERBERRY IMMUNE HEALTH [Concomitant]
  21. MULTIVITAMIN 50 PLUS [Concomitant]
  22. FISH OIL [Concomitant]
     Active Substance: FISH OIL
  23. MAGNESIUM [Concomitant]
     Active Substance: MAGNESIUM
  24. LOSARTAN POTASSIUM [Concomitant]
     Active Substance: LOSARTAN POTASSIUM
  25. EVISTA [Concomitant]
     Active Substance: RALOXIFENE HYDROCHLORIDE
  26. ETODOLAC [Concomitant]
     Active Substance: ETODOLAC
  27. OMEPRAZOLE [Concomitant]
     Active Substance: OMEPRAZOLE
  28. DUPIXENT [Concomitant]
     Active Substance: DUPILUMAB
  29. GLATOPA [Concomitant]
     Active Substance: GLATIRAMER ACETATE

REACTIONS (5)
  - Device use issue [Unknown]
  - Accidental overdose [Unknown]
  - Taste disorder [Unknown]
  - Eye pain [Unknown]
  - Rhinorrhoea [Unknown]

NARRATIVE: CASE EVENT DATE: 20240724
